FAERS Safety Report 8599769-4 (Version None)
Quarter: 2012Q3

REPORT INFORMATION
  Report Type: 
  Country: None (occurrence: None)
  Receive Date: 20120816
  Receipt Date: 20120813
  Transmission Date: 20120928
  Serious: Yes (Hospitalization)
  Sender: FDA-Public Use
  Company Number: CA-ROCHE-1102117

PATIENT
  Sex: Male
  Weight: 69.462 kg

DRUGS (10)
  1. OXAZEPAM [Concomitant]
  2. ASPIRIN [Concomitant]
  3. MABTHERA [Suspect]
     Indication: IDIOPATHIC THROMBOCYTOPENIC PURPURA
     Route: 042
     Dates: start: 20120809
  4. FLUTICASONE PROPIONATE [Concomitant]
  5. RABEPRAZOLE SODIUM [Concomitant]
  6. PREDNISONE TAB [Concomitant]
  7. AZITHROMYCIN [Concomitant]
  8. CRESTOR [Concomitant]
  9. SYNTHROID [Concomitant]
  10. SENOKOT [Concomitant]

REACTIONS (1)
  - MALAISE [None]
